FAERS Safety Report 8972767 (Version 1)
Quarter: 2012Q4

REPORT INFORMATION
  Report Type: 
  Country: US (occurrence: US)
  Receive Date: 20121218
  Receipt Date: 20121218
  Transmission Date: 20130627
  Serious: No
  Sender: FDA-Public Use
  Company Number: US-B.I. PHARMACEUTICALS,INC./RIDGEFIELD-2012-BI-02560BP

PATIENT
  Age: 58 Year
  Sex: Male
  Weight: 103 kg

DRUGS (3)
  1. MIRAPEX [Suspect]
     Indication: PARKINSON^S DISEASE
     Dosage: 3 mg
     Route: 048
     Dates: start: 20120901
  2. AVODART [Concomitant]
     Indication: BENIGN PROSTATIC HYPERPLASIA
     Dosage: 0.5 mg
     Route: 048
     Dates: start: 2002
  3. METOPROLOL [Concomitant]
     Indication: HYPERTENSION
     Dosage: 75 mg
     Route: 048
     Dates: start: 201210

REACTIONS (2)
  - Decreased activity [Not Recovered/Not Resolved]
  - Gait disturbance [Not Recovered/Not Resolved]
